FAERS Safety Report 7792284-7 (Version None)
Quarter: 2011Q4

REPORT INFORMATION
  Report Type: 
  Country: None (occurrence: None)
  Receive Date: 20111003
  Receipt Date: 20110926
  Transmission Date: 20120403
  Serious: Yes (Other)
  Sender: FDA-Public Use
  Company Number: CN-PFIZER INC-2011227879

PATIENT
  Age: 58 Year
  Sex: Female

DRUGS (4)
  1. VANCOMYCIN [Concomitant]
     Indication: STAPHYLOCOCCAL INFECTION
     Route: 042
  2. TRAZODONE HCL [Suspect]
     Indication: DEPRESSION
     Route: 048
  3. LINEZOLID [Suspect]
     Indication: STAPHYLOCOCCAL INFECTION
     Route: 048
  4. RIFAMPICIN [Concomitant]
     Indication: STAPHYLOCOCCAL INFECTION

REACTIONS (2)
  - TOXICITY TO VARIOUS AGENTS [None]
  - DISORIENTATION [None]
